FAERS Safety Report 19035369 (Version 3)
Quarter: 2021Q3

REPORT INFORMATION
  Report Type: Spontaneous
  Country: US (occurrence: US)
  Receive Date: 20210320
  Receipt Date: 20210921
  Transmission Date: 20211014
  Serious: No
  Sender: FDA-Public Use
  Company Number: US-ACORDA-ACO_167601_2021

PATIENT
  Age: 58 Year
  Sex: Female
  Weight: 114.74 kg

DRUGS (16)
  1. INBRIJA [Suspect]
     Active Substance: LEVODOPA
     Indication: ON AND OFF PHENOMENON
     Dosage: 84 MILLIGRAM, PRN (NOT TO EXCEED 5 DOSES A DAY)
     Dates: start: 20210118
  2. ABILIFY [Concomitant]
     Active Substance: ARIPIPRAZOLE
     Indication: PRODUCT USED FOR UNKNOWN INDICATION
     Dosage: 10 MILLIGRAM
     Route: 065
  3. VENTOLIN HFA [Concomitant]
     Active Substance: ALBUTEROL SULFATE
     Indication: PRODUCT USED FOR UNKNOWN INDICATION
     Dosage: UNK
     Route: 065
  4. GOCOVRI [Suspect]
     Active Substance: AMANTADINE
     Dosage: 137 MILLIGRAM 1X/DAY AT BEDTIME
     Route: 048
     Dates: start: 2020
  5. CALCIUM (DIETARY SUPPLEMENT) [Concomitant]
     Indication: PRODUCT USED FOR UNKNOWN INDICATION
     Dosage: 600 MILLIGRAM
     Route: 065
  6. PROVERA [Concomitant]
     Active Substance: MEDROXYPROGESTERONE ACETATE
     Indication: UTERINE DISORDER
     Dosage: 2.5 MILLIGRAM
     Route: 065
  7. CARBIDOPA/LEVODOPA [Concomitant]
     Active Substance: CARBIDOPA\LEVODOPA
     Dosage: UNK, 5X/QD
     Route: 065
     Dates: start: 2019
  8. GOCOVRI [Suspect]
     Active Substance: AMANTADINE
     Dosage: 137 MILLIGRAM 1X/DAY AT BEDTIME
     Route: 048
  9. CARBIDOPA/LEVODOPA [Concomitant]
     Active Substance: CARBIDOPA\LEVODOPA
     Indication: PRODUCT USED FOR UNKNOWN INDICATION
     Dosage: 25/100 MG
     Route: 065
  10. CARBIDOPA/LEVODOPA [Concomitant]
     Active Substance: CARBIDOPA\LEVODOPA
     Dosage: UNK, QID
     Route: 065
  11. INBRIJA [Suspect]
     Active Substance: LEVODOPA
     Indication: PARKINSON^S DISEASE
     Dosage: 42 MILLIGRAM: 2 CAPSULES AS NEEDED, DO NOT EXCEED 5 DOSES IN 1 DAY
     Dates: start: 2020
  12. GOCOVRI [Suspect]
     Active Substance: AMANTADINE
     Indication: DYSKINESIA
     Dosage: 68.5 MILLIGRAM 1X/DAY AT BEDTIME
     Route: 048
     Dates: start: 20190419, end: 2019
  13. GOCOVRI [Suspect]
     Active Substance: AMANTADINE
     Dosage: 137 MILLIGRAM 1X/DAY AT BEDTIME
     Route: 048
     Dates: start: 2019, end: 2020
  14. BUPROPION SR [Concomitant]
     Active Substance: BUPROPION HYDROCHLORIDE
     Indication: PRODUCT USED FOR UNKNOWN INDICATION
     Dosage: 100 MILLIGRAM
     Route: 065
  15. OTHER THERAPEUTIC PRODUCTS [UNSPECIFIED EYE DROPS] [Concomitant]
     Indication: HYPERSENSITIVITY
     Dosage: UNK
     Route: 065
  16. FLOVENT HFA [Concomitant]
     Active Substance: FLUTICASONE PROPIONATE
     Indication: PRODUCT USED FOR UNKNOWN INDICATION
     Dosage: UNK
     Route: 065

REACTIONS (17)
  - Condition aggravated [Not Recovered/Not Resolved]
  - Insomnia [Not Recovered/Not Resolved]
  - Renal impairment [Not Recovered/Not Resolved]
  - Choking [Unknown]
  - Device issue [Unknown]
  - Gait disturbance [Recovered/Resolved]
  - Tremor [Not Recovered/Not Resolved]
  - Cough [Unknown]
  - Intentional underdose [Unknown]
  - Dizziness postural [Not Recovered/Not Resolved]
  - Speech disorder [Recovered/Resolved]
  - Somnolence [Not Recovered/Not Resolved]
  - Dysphonia [Recovered/Resolved]
  - Dry mouth [Not Recovered/Not Resolved]
  - Dysstasia [Recovered/Resolved]
  - Dry throat [Unknown]
  - Fall [Unknown]

NARRATIVE: CASE EVENT DATE: 202001
